FAERS Safety Report 19065892 (Version 1)
Quarter: 2021Q1

REPORT INFORMATION
  Report Type: Spontaneous
  Country: DE (occurrence: DE)
  Receive Date: 20210327
  Receipt Date: 20210327
  Transmission Date: 20210420
  Serious: Yes (Hospitalization)
  Sender: FDA-Public Use
  Company Number: NVSC2021DE060215

PATIENT
  Age: 14 Year
  Sex: Female
  Weight: 60 kg

DRUGS (3)
  1. METAMIZOLE [Suspect]
     Active Substance: METAMIZOLE
     Indication: SUICIDAL IDEATION
     Dosage: UNK (UNKLAR)
     Route: 048
     Dates: start: 20200610, end: 20200610
  2. IBUPROFEN. [Suspect]
     Active Substance: IBUPROFEN
     Indication: SUICIDAL IDEATION
     Dosage: 4800 MG, QD (: 4800 MG MILLGRAM(S) EVERY DAYS 6 SEPARATED DOSES)
     Route: 048
     Dates: start: 20200610, end: 20200610
  3. OMEGA?3 ACIDS [Suspect]
     Active Substance: OMEGA-3 FATTY ACIDS
     Indication: SUICIDAL IDEATION
     Dosage: 4 DF, QD
     Route: 048
     Dates: start: 20200610, end: 20200610

REACTIONS (2)
  - Toxicity to various agents [Recovered/Resolved]
  - Intentional overdose [Recovered/Resolved]

NARRATIVE: CASE EVENT DATE: 20200610
